FAERS Safety Report 18554307 (Version 2)
Quarter: 2020Q4

REPORT INFORMATION
  Report Type: Spontaneous
  Country: IT (occurrence: IT)
  Receive Date: 20201127
  Receipt Date: 20201209
  Transmission Date: 20210114
  Serious: Yes (Hospitalization)
  Sender: FDA-Public Use
  Company Number: IT-009507513-2011ITA015608

PATIENT
  Age: 47 Year
  Sex: Male

DRUGS (6)
  1. OLANZAPINE. [Concomitant]
     Active Substance: OLANZAPINE
  2. OLANZAPINE. [Concomitant]
     Active Substance: OLANZAPINE
  3. ZERBAXA [Suspect]
     Active Substance: CEFTOLOZANE SULFATE\TAZOBACTAM SODIUM
     Indication: INFECTION
     Dosage: 4.5 GRAMS, QD
     Route: 042
     Dates: start: 20201021, end: 20201109
  4. EDOXABAN [Concomitant]
     Active Substance: EDOXABAN TOSYLATE
  5. EDOXABAN [Concomitant]
     Active Substance: EDOXABAN TOSYLATE
  6. OXACILLIN SODIUM [Suspect]
     Active Substance: OXACILLIN SODIUM
     Indication: BURKHOLDERIA PSEUDOMALLEI INFECTION
     Dosage: 4 GRAMS, QD
     Route: 042
     Dates: start: 20201021, end: 20201108

REACTIONS (2)
  - Pyrexia [Recovered/Resolved]
  - Erythema [Recovered/Resolved]

NARRATIVE: CASE EVENT DATE: 20201109
